FAERS Safety Report 10337466 (Version 6)
Quarter: 2015Q2

REPORT INFORMATION
  Report Type: Spontaneous
  Country: US (occurrence: US)
  Receive Date: 20140724
  Receipt Date: 20150625
  Transmission Date: 20150821
  Serious: Yes (Death, Hospitalization, Other)
  Sender: FDA-Public Use
  Company Number: US-ACTELION-A-US2014-102624

PATIENT
  Age: 59 Year
  Sex: Male

DRUGS (23)
  1. ASPIRIN. [Concomitant]
     Active Substance: ASPIRIN
  2. XIFAXAN [Concomitant]
     Active Substance: RIFAXIMIN
     Dosage: UNK
     Dates: start: 20140624
  3. LACTULOSE. [Concomitant]
     Active Substance: LACTULOSE
  4. LASIX [Concomitant]
     Active Substance: FUROSEMIDE
  5. KLOR-CON [Concomitant]
     Active Substance: POTASSIUM CHLORIDE
     Dosage: UNK
  6. SPIRONOLACTONE. [Concomitant]
     Active Substance: SPIRONOLACTONE
  7. RIFAXIMIN [Concomitant]
     Active Substance: RIFAXIMIN
  8. ZINC GLUCONATE [Concomitant]
     Active Substance: ZINC GLUCONATE
  9. MAGNESIUM OXIDE. [Concomitant]
     Active Substance: MAGNESIUM OXIDE
  10. OPSUMIT [Suspect]
     Active Substance: MACITENTAN
     Indication: PULMONARY ARTERIAL HYPERTENSION
     Dosage: 10 MG, QD
     Route: 048
     Dates: start: 20140304, end: 20150524
  11. ADCIRCA [Concomitant]
     Active Substance: TADALAFIL
  12. PRIMIDONE. [Concomitant]
     Active Substance: PRIMIDONE
     Dosage: UNK
  13. OMEPRAZOLE. [Concomitant]
     Active Substance: OMEPRAZOLE
  14. KEPPRA [Concomitant]
     Active Substance: LEVETIRACETAM
  15. BUMETANIDE. [Concomitant]
     Active Substance: BUMETANIDE
  16. ALDACTONE [Concomitant]
     Active Substance: SPIRONOLACTONE
  17. ATIVAN [Concomitant]
     Active Substance: LORAZEPAM
  18. BUMEX [Concomitant]
     Active Substance: BUMETANIDE
  19. MIDODRINE [Concomitant]
     Active Substance: MIDODRINE
  20. DILAUDID [Concomitant]
     Active Substance: HYDROMORPHONE HYDROCHLORIDE
  21. ROXICODONE [Concomitant]
     Active Substance: OXYCODONE HYDROCHLORIDE
  22. ADVIL [Concomitant]
     Active Substance: IBUPROFEN
  23. ULTRAM [Concomitant]
     Active Substance: TRAMADOL HYDROCHLORIDE

REACTIONS (6)
  - Hepatic cirrhosis [Fatal]
  - Pulmonary arterial pressure abnormal [Unknown]
  - Transplant evaluation [Unknown]
  - Ammonia increased [Unknown]
  - Hepatic encephalopathy [Unknown]
  - Enuresis [Not Recovered/Not Resolved]

NARRATIVE: CASE EVENT DATE: 20140624
